FAERS Safety Report 15491881 (Version 1)
Quarter: 2018Q4

REPORT INFORMATION
  Report Type: Spontaneous
  Country: US (occurrence: US)
  Receive Date: 20181011
  Receipt Date: 20181011
  Transmission Date: 20190205
  Serious: Yes (Other)
  Sender: FDA-Public Use
  Company Number: None

PATIENT
  Age: 32 Year
  Sex: Female
  Weight: 57.6 kg

DRUGS (2)
  1. CEFTAZIDIME. [Concomitant]
     Active Substance: CEFTAZIDIME
     Dates: start: 20181006
  2. POLYMYXIN B. [Suspect]
     Active Substance: POLYMYXIN B
     Indication: INFECTIVE PULMONARY EXACERBATION OF CYSTIC FIBROSIS
     Route: 042
     Dates: start: 20181006

REACTIONS (4)
  - Hypoaesthesia [None]
  - Vulvovaginal disorder [None]
  - Eructation [None]
  - Tooth disorder [None]

NARRATIVE: CASE EVENT DATE: 20181011
